FAERS Safety Report 21628038 (Version 1)
Quarter: 2022Q4

REPORT INFORMATION
  Report Type: Spontaneous
  Country: RU (occurrence: RU)
  Receive Date: 20221122
  Receipt Date: 20221122
  Transmission Date: 20230112
  Serious: Yes (Disabling, Other)
  Sender: FDA-Public Use
  Company Number: RU-GILEAD-2022-0605738

PATIENT
  Sex: Female

DRUGS (1)
  1. EPCLUSA [Suspect]
     Active Substance: SOFOSBUVIR\VELPATASVIR
     Indication: Product used for unknown indication
     Route: 065

REACTIONS (1)
  - Disease recurrence [Recovered/Resolved]

NARRATIVE: CASE EVENT DATE: 20221117
